FAERS Safety Report 11353627 (Version 1)
Quarter: 2015Q3

REPORT INFORMATION
  Report Type: Spontaneous
  Country: US (occurrence: US)
  Receive Date: 20150807
  Receipt Date: 20150807
  Transmission Date: 20151125
  Serious: No
  Sender: FDA-Public Use
  Company Number: US-JNJFOC-20150418420

PATIENT
  Age: 87 Year
  Sex: Female
  Weight: 65.77 kg

DRUGS (2)
  1. MENS ROGAINE EXTRA STRENGTH [Suspect]
     Active Substance: MINOXIDIL
     Indication: HAIR GROWTH ABNORMAL
     Dosage: 1 TABLESPOON, STARTED USING THIS PRODUCT LAST DECEMBER
     Route: 061
     Dates: end: 20150421
  2. OTHER THERAPEUTIC MEDICATION [Concomitant]
     Active Substance: UNSPECIFIED INGREDIENT
     Indication: BLOOD PRESSURE MEASUREMENT
     Route: 065

REACTIONS (4)
  - Hair colour changes [Unknown]
  - Wrong patient received medication [Unknown]
  - Wrong technique in product usage process [Unknown]
  - Product quality issue [Unknown]
